FAERS Safety Report 15595895 (Version 2)
Quarter: 2019Q1

REPORT INFORMATION
  Report Type: Spontaneous
  Country: US (occurrence: US)
  Receive Date: 20181107
  Receipt Date: 20190102
  Transmission Date: 20190417
  Serious: Yes (Other)
  Sender: FDA-Public Use
  Company Number: US-JNJFOC-20181103578

PATIENT
  Age: 36 Year
  Sex: Female
  Weight: 62.14 kg

DRUGS (14)
  1. METHOTREXATE. [Concomitant]
     Active Substance: METHOTREXATE
     Indication: CROHN^S DISEASE
     Dosage: 40 MG/ TABLET/ 10 MG/ ONCE A WEEK/ PO
     Route: 048
     Dates: start: 20160104
  2. VITAMIN D3 [Concomitant]
     Active Substance: CHOLECALCIFEROL
     Indication: CROHN^S DISEASE
     Dosage: 40 MG/ TABLET/ 10 MG/ ONCE A WEEK/ PO
     Route: 065
     Dates: start: 2014
  3. STELARA [Suspect]
     Active Substance: USTEKINUMAB
     Indication: CROHN^S DISEASE
     Route: 058
     Dates: start: 20181024, end: 20181130
  4. WELCHOL [Concomitant]
     Active Substance: COLESEVELAM HYDROCHLORIDE
     Indication: CROHN^S DISEASE
     Dosage: 40 MG/ TABLET/ 10 MG/ ONCE A WEEK/ PO
     Route: 065
     Dates: start: 20170104
  5. FLONASE [Concomitant]
     Active Substance: FLUTICASONE PROPIONATE
     Route: 065
     Dates: start: 20170508
  6. AMBIEN [Concomitant]
     Active Substance: ZOLPIDEM TARTRATE
     Route: 065
     Dates: start: 2016
  7. CYANOCOBALAMINE [Concomitant]
     Active Substance: CYANOCOBALAMIN
     Indication: VITAMIN B12 DEFICIENCY
     Dosage: 40 MG/ TABLET/ 10 MG/ ONCE A WEEK/ PO
     Route: 065
     Dates: start: 20160406
  8. CETRIZINE [Concomitant]
     Active Substance: CETIRIZINE HYDROCHLORIDE
     Indication: SEASONAL ALLERGY
     Dosage: 40 MG/ TABLET/ 10 MG/ ONCE A WEEK/ PO
     Route: 065
     Dates: start: 20161216
  9. WELCHOL [Concomitant]
     Active Substance: COLESEVELAM HYDROCHLORIDE
     Indication: DIARRHOEA
     Dosage: 40 MG/ TABLET/ 10 MG/ ONCE A WEEK/ PO
     Route: 065
     Dates: start: 20170104
  10. CALMOSEPTINE                       /00244301/ [Concomitant]
     Route: 065
     Dates: start: 2017
  11. BENADRYL [Concomitant]
     Active Substance: DIPHENHYDRAMINE HYDROCHLORIDE
     Indication: PRURITUS
     Dosage: 50 MG/ TABLET/ 25 MG/ EVERY 4 HOURS/ PO
     Route: 048
     Dates: start: 20181026
  12. STELARA [Suspect]
     Active Substance: USTEKINUMAB
     Indication: CROHN^S DISEASE
     Route: 058
     Dates: start: 20180829
  13. PROBIOTICS NOS [Concomitant]
     Active Substance: PROBIOTICS NOS
     Indication: CROHN^S DISEASE
     Dosage: 40 MG/ TABLET/ 10 MG/ ONCE A WEEK/ PO
     Route: 065
     Dates: start: 2015
  14. IRON [Concomitant]
     Active Substance: IRON
     Indication: ANAEMIA
     Dosage: 40 MG/ TABLET/ 10 MG/ ONCE A WEEK/ PO
     Route: 065
     Dates: start: 2015

REACTIONS (3)
  - Pruritus generalised [Recovered/Resolved]
  - Injection site reaction [Recovered/Resolved]
  - Surgery [Unknown]

NARRATIVE: CASE EVENT DATE: 20181024
